FAERS Safety Report 14331183 (Version 1)
Quarter: 2017Q4

REPORT INFORMATION
  Report Type: Spontaneous
  Country: AU (occurrence: AU)
  Receive Date: 20171228
  Receipt Date: 20171228
  Transmission Date: 20180321
  Serious: Yes (Other)
  Sender: FDA-Public Use
  Company Number: AU-ROCHE-2045459

PATIENT
  Age: 78 Year
  Sex: Male

DRUGS (2)
  1. COTELLIC [Suspect]
     Active Substance: COBIMETINIB
     Indication: METASTATIC MALIGNANT MELANOMA
     Dosage: STARTED AT STANDARD DOSING
     Route: 065
  2. ZELBORAF [Suspect]
     Active Substance: VEMURAFENIB
     Indication: METASTATIC MALIGNANT MELANOMA
     Dosage: STARTED AT STANDARD DOSING
     Route: 065

REACTIONS (3)
  - Myalgia [Recovered/Resolved]
  - Renal failure [Recovered/Resolved]
  - Photophobia [Recovered/Resolved]
